FAERS Safety Report 7180805-7 (Version None)
Quarter: 2010Q4

REPORT INFORMATION
  Report Type: 
  Country: None (occurrence: None)
  Receive Date: 20101221
  Receipt Date: 20101207
  Transmission Date: 20110411
  Serious: Yes (Hospitalization)
  Sender: FDA-Public Use
  Company Number: US-MYLANLABS-2010S1022781

PATIENT
  Age: 43 Year
  Sex: Female

DRUGS (4)
  1. PHENYTOIN [Suspect]
     Route: 065
  2. ESCITALOPRAM [Concomitant]
     Route: 065
  3. LEVETIRACETAM [Concomitant]
     Route: 065
  4. IBUPROFEN [Concomitant]
     Dosage: AS NEEDED
     Route: 065

REACTIONS (3)
  - ANTIMITOCHONDRIAL ANTIBODY POSITIVE [None]
  - DRUG RASH WITH EOSINOPHILIA AND SYSTEMIC SYMPTOMS [None]
  - HEPATIC FAILURE [None]
